FAERS Safety Report 16413445 (Version 1)
Quarter: 2019Q2

REPORT INFORMATION
  Report Type: Spontaneous
  Country: DE (occurrence: DE)
  Receive Date: 20190611
  Receipt Date: 20190611
  Transmission Date: 20190711
  Serious: No
  Sender: FDA-Public Use
  Company Number: DE-LUPIN PHARMACEUTICALS INC.-2019-00561

PATIENT
  Sex: Female

DRUGS (1)
  1. QUETIAPINE FUMARATE EXTENDED-RELEASE TABLETS, 50 MG [Suspect]
     Active Substance: QUETIAPINE FUMARATE
     Indication: PRODUCT USED FOR UNKNOWN INDICATION
     Dosage: UNK UNK, QD (HALF DOSE)
     Route: 048

REACTIONS (3)
  - Wrong technique in product usage process [Unknown]
  - Product prescribing error [Unknown]
  - No adverse event [Unknown]

NARRATIVE: CASE EVENT DATE: 20190124
